FAERS Safety Report 7086903-0 (Version None)
Quarter: 2010Q4

REPORT INFORMATION
  Report Type: 
  Country: None (occurrence: None)
  Receive Date: 20101106
  Receipt Date: 20100929
  Transmission Date: 20110411
  Serious: No
  Sender: FDA-Public Use
  Company Number: US-WYE-H17236610

PATIENT
  Sex: Female
  Weight: 97.61 kg

DRUGS (2)
  1. PREMARIN [Suspect]
     Indication: HYSTERECTOMY
     Dosage: 1.25 MG ONCE DAILY
     Route: 048
     Dates: start: 19970101, end: 20100701
  2. PREMARIN [Suspect]
     Dosage: 0.9 MG ONCE DAILY
     Route: 048
     Dates: start: 20100701

REACTIONS (2)
  - DRUG EFFECT DECREASED [None]
  - WEIGHT DECREASED [None]
